FAERS Safety Report 24731136 (Version 1)
Quarter: 2024Q4

REPORT INFORMATION
  Report Type: Spontaneous
  Country: SE (occurrence: SE)
  Receive Date: 20241213
  Receipt Date: 20241213
  Transmission Date: 20250115
  Serious: Yes (Other)
  Sender: RANBAXY
  Company Number: SE-SUN PHARMACEUTICAL INDUSTRIES LTD-2024RR-482930

PATIENT
  Age: 51 Year
  Sex: Female

DRUGS (6)
  1. CIPROFLOXACIN [Suspect]
     Active Substance: CIPROFLOXACIN
     Indication: Product used for unknown indication
     Dosage: UNK
     Route: 065
     Dates: start: 20240614, end: 20240614
  2. DIFFERIN [Concomitant]
     Active Substance: ADAPALENE
     Indication: Product used for unknown indication
     Dosage: 1 APPLICATION X1 TV
     Route: 065
     Dates: start: 20210310
  3. DULOXETINE KRKA [Concomitant]
     Indication: Product used for unknown indication
     Dosage: 90 MILLIGRAM, DAILY
     Route: 065
     Dates: start: 20230118
  4. VENLAFAXINE HYDROCHLORIDE [Concomitant]
     Active Substance: VENLAFAXINE HYDROCHLORIDE
     Indication: Product used for unknown indication
     Dosage: 112.5 MILLIGRAM, DAILY
     Route: 065
     Dates: start: 20230118
  5. LOCOBASE LPL [Concomitant]
     Indication: Product used for unknown indication
     Dosage: 1 APPLICATION X1 TV
     Route: 065
     Dates: start: 20210324
  6. NEXPLANON [Concomitant]
     Active Substance: ETONOGESTREL
     Indication: Product used for unknown indication
     Dosage: 68 MILLIGRAM, 1 IMPLANT EVERY 3 YEARS
     Route: 065
     Dates: start: 20161105

REACTIONS (2)
  - Anaphylactic reaction [Recovering/Resolving]
  - Chest pain [Recovering/Resolving]

NARRATIVE: CASE EVENT DATE: 20240614
